FAERS Safety Report 18351430 (Version 1)
Quarter: 2020Q4

REPORT INFORMATION
  Report Type: Spontaneous
  Country: US (occurrence: US)
  Receive Date: 20201006
  Receipt Date: 20201006
  Transmission Date: 20210114
  Serious: No
  Sender: FDA-Public Use
  Company Number: US-BRECKENRIDGE PHARMACEUTICAL, INC.-2092476

PATIENT
  Age: 57 Year
  Sex: Female
  Weight: 71.36 kg

DRUGS (1)
  1. DULOXETINE. [Suspect]
     Active Substance: DULOXETINE
     Indication: DEPRESSION
     Route: 048

REACTIONS (7)
  - Product quality issue [None]
  - Dizziness [None]
  - Malaise [None]
  - Nausea [None]
  - Depression [None]
  - Therapeutic product ineffective [None]
  - Product substitution issue [None]
